FAERS Safety Report 16111087 (Version 1)
Quarter: 2019Q2

REPORT INFORMATION
  Report Type: Spontaneous
  Country: US (occurrence: US)
  Receive Date: 20190322
  Receipt Date: 20190322
  Transmission Date: 20190711
  Serious: Yes (Other)
  Sender: FDA-Public Use
  Company Number: None

PATIENT
  Age: 61 Year
  Sex: Female
  Weight: 87.75 kg

DRUGS (7)
  1. NASONEX [Suspect]
     Active Substance: MOMETASONE FUROATE
  2. MONTELUKAST [Suspect]
     Active Substance: MONTELUKAST SODIUM
  3. XOPENEX [Suspect]
     Active Substance: LEVALBUTEROL HYDROCHLORIDE
  4. AIMOVIG [Suspect]
     Active Substance: ERENUMAB-AOOE
     Indication: HEMIPLEGIC MIGRAINE
     Dosage: ?          QUANTITY:1 INJECTION(S);OTHER FREQUENCY:ONCE A MONTH;?
     Route: 058
  5. LEVOCETIRIZINE [Suspect]
     Active Substance: LEVOCETIRIZINE
  6. VERAPAMIL [Suspect]
     Active Substance: VERAPAMIL HYDROCHLORIDE
  7. SYMBICORT [Suspect]
     Active Substance: BUDESONIDE\FORMOTEROL FUMARATE DIHYDRATE

REACTIONS (1)
  - Anaphylactic reaction [None]

NARRATIVE: CASE EVENT DATE: 20190319
